FAERS Safety Report 6218256-1 (Version None)
Quarter: 2009Q2

REPORT INFORMATION
  Report Type: 
  Country: None (occurrence: None)
  Receive Date: 20090608
  Receipt Date: 20090529
  Transmission Date: 20091009
  Serious: Yes (Hospitalization)
  Sender: FDA-Public Use
  Company Number: US-BIOGENIDEC-2008BI026206

PATIENT
  Age: 70 Year
  Sex: Female

DRUGS (3)
  1. AVONEX [Suspect]
     Indication: MULTIPLE SCLEROSIS
     Route: 030
     Dates: start: 19960101
  2. FLECAINIDE ACETATE [Concomitant]
     Indication: CARDIAC DISORDER
  3. ANGIOTENSIN II RECEPTOR BLOCKERS [Concomitant]
     Indication: CARDIAC DISORDER

REACTIONS (2)
  - ATRIAL FIBRILLATION [None]
  - CARDIAC ENZYMES INCREASED [None]
